FAERS Safety Report 24527571 (Version 1)
Quarter: 2024Q4

REPORT INFORMATION
  Report Type: Report from Study
  Country: US (occurrence: US)
  Receive Date: 20241021
  Receipt Date: 20241021
  Transmission Date: 20250115
  Serious: Yes (Other)
  Sender: ABBVIE
  Company Number: US-ABBVIE-5968020

PATIENT
  Sex: Female

DRUGS (1)
  1. HUMIRA [Suspect]
     Active Substance: ADALIMUMAB
     Indication: Rheumatoid arthritis
     Route: 058
     Dates: start: 20240529

REACTIONS (3)
  - Osteoarthritis [Unknown]
  - Peripheral swelling [Recovering/Resolving]
  - Grip strength decreased [Recovering/Resolving]

NARRATIVE: CASE EVENT DATE: 20240101
